FAERS Safety Report 9349875 (Version 1)
Quarter: 2013Q2

REPORT INFORMATION
  Report Type: Spontaneous
  Country: US (occurrence: None)
  Receive Date: 20130611
  Receipt Date: 20130611
  Transmission Date: 20140414
  Serious: Yes (Death, Other)
  Sender: FDA-Public Use
  Company Number: 2013P1006719

PATIENT
  Age: 53 Year
  Sex: Female

DRUGS (10)
  1. RIFAMPIN [Suspect]
     Indication: TUBERCULOSIS
  2. RIFAMPIN [Suspect]
     Indication: PYOMYOSITIS
  3. ISONIAZID\PYRIDOXINE [Suspect]
     Indication: TUBERCULOSIS
  4. ISONIAZID\PYRIDOXINE [Suspect]
     Indication: PYOMYOSITIS
  5. PYRAZINAMIDE [Suspect]
     Indication: TUBERCULOSIS
  6. PYRAZINAMIDE [Suspect]
     Indication: PYOMYOSITIS
  7. ETHAMBUTOL [Suspect]
     Indication: TUBERCULOSIS
  8. ETHAMBUTOL [Suspect]
     Indication: PYOMYOSITIS
  9. MOXIFLOXACIN [Suspect]
     Indication: TUBERCULOSIS
  10. MOXIFLOXACIN [Suspect]
     Indication: PYOMYOSITIS

REACTIONS (6)
  - Hepatitis [None]
  - Diarrhoea [None]
  - Septic shock [None]
  - Respiratory failure [None]
  - Continuous haemodiafiltration [None]
  - Renal failure acute [None]
